FAERS Safety Report 10863058 (Version 1)
Quarter: 2015Q1

REPORT INFORMATION
  Report Type: Spontaneous
  Country: US (occurrence: US)
  Receive Date: 20150224
  Receipt Date: 20150224
  Transmission Date: 20150721
  Serious: Yes (Other)
  Sender: FDA-Public Use
  Company Number: US-LUNDBECK-DKLU1108881

PATIENT
  Age: 10 Year
  Sex: Female

DRUGS (2)
  1. ONFI [Suspect]
     Active Substance: CLOBAZAM
     Indication: SEIZURE
     Route: 065
     Dates: start: 201412
  2. ONFI [Suspect]
     Active Substance: CLOBAZAM
     Indication: ELECTROENCEPHALOGRAM ABNORMAL

REACTIONS (3)
  - Status epilepticus [Unknown]
  - Seizure [Unknown]
  - Tonic clonic movements [Unknown]

NARRATIVE: CASE EVENT DATE: 201501
